FAERS Safety Report 8543684-9 (Version None)
Quarter: 2012Q3

REPORT INFORMATION
  Report Type: 
  Country: None (occurrence: None)
  Receive Date: 20120717
  Receipt Date: 20120702
  Transmission Date: 20120928
  Serious: Yes (Hospitalization)
  Sender: FDA-Public Use
  Company Number: FR-CLINIGEN HEALTHCARE LIMITED-002978

PATIENT
  Age: 27 Year
  Sex: Female

DRUGS (12)
  1. FOSCAVIR [Suspect]
     Indication: PRODUCT USED FOR UNKNOWN INDICATION
     Dosage: INTRAVENOUS (NOT OTHERWISE SPECIFIED)
     Route: 042
     Dates: start: 20120210, end: 20120210
  2. GAVISCON [Concomitant]
  3. TRUVADA [Concomitant]
  4. LEDERFOLINE( LEDERFOLINE) [Concomitant]
  5. RALTEGRAVIR (RALTEGRAVIR) [Concomitant]
  6. INEXIUM (INEXIUM) [Concomitant]
  7. FLUCONAZOLE [Concomitant]
  8. DIFFU K (DIFFU K) [Concomitant]
  9. BACTRIM [Concomitant]
  10. PRIMPERAN (PRIMPERAN) [Concomitant]
  11. ROVALCYTE (ROVALCYTE) [Concomitant]
  12. CANCIDAS [Suspect]
     Indication: CANDIDIASIS
     Dosage: 70.00 MG
     Dates: start: 20120210, end: 20120210

REACTIONS (1)
  - ANAPHYLACTIC REACTION [None]
